FAERS Safety Report 24798494 (Version 1)
Quarter: 2025Q1

REPORT INFORMATION
  Report Type: Spontaneous
  Country: PT (occurrence: PT)
  Receive Date: 20250102
  Receipt Date: 20250102
  Transmission Date: 20250408
  Serious: Yes (Life-Threatening, Hospitalization, Other)
  Sender: Unknown Manufacturer
  Company Number: PT-862174955-ML2024-06846

PATIENT
  Age: 85 Year
  Sex: Male

DRUGS (4)
  1. DICLOFENAC [Suspect]
     Active Substance: DICLOFENAC
     Indication: Gout
  2. COLCHICINE [Suspect]
     Active Substance: COLCHICINE
     Indication: Gout
  3. HYDROCHLOROTHIAZIDE [Concomitant]
     Active Substance: HYDROCHLOROTHIAZIDE
     Indication: Hypertension
  4. LOSARTAN [Concomitant]
     Active Substance: LOSARTAN
     Indication: Hypertension

REACTIONS (2)
  - Haematochezia [Unknown]
  - Thrombotic thrombocytopenic purpura [Recovering/Resolving]
